FAERS Safety Report 6405173-7 (Version None)
Quarter: 2009Q4

REPORT INFORMATION
  Report Type: 
  Country: None (occurrence: None)
  Receive Date: 20091016
  Receipt Date: 20091016
  Transmission Date: 20100525
  Serious: Yes (Life-Threatening, Hospitalization, Other)
  Sender: FDA-Public Use
  Company Number: None

PATIENT
  Sex: Male
  Weight: 44.9061 kg

DRUGS (1)
  1. LEXAPRO [Suspect]
     Indication: ANXIETY
     Dosage: 1 BEDTIME ORAL
     Route: 048
     Dates: start: 20090922, end: 20090923

REACTIONS (10)
  - ASTHENIA [None]
  - BLOOD PHOSPHORUS ABNORMAL [None]
  - BLOOD POTASSIUM ABNORMAL [None]
  - CEREBRAL HAEMORRHAGE [None]
  - CONFUSIONAL STATE [None]
  - DECREASED ACTIVITY [None]
  - FALL [None]
  - GAIT DISTURBANCE [None]
  - HALLUCINATION [None]
  - INAPPROPRIATE ANTIDIURETIC HORMONE SECRETION [None]
